FAERS Safety Report 8816827 (Version 1)
Quarter: 2012Q4

REPORT INFORMATION
  Report Type: Spontaneous
  Country: US (occurrence: None)
  Receive Date: 20121001
  Receipt Date: 20121001
  Transmission Date: 20130627
  Serious: Yes (Disabling)
  Sender: FDA-Public Use
  Company Number: SUNNJ12-0016 CRC12-467

PATIENT
  Sex: Female
  Weight: 99.79 kg

DRUGS (2)
  1. NIMODIPINE [Suspect]
     Indication: STROKE
     Dosage: 4 caps. daily by mouth
     Route: 048
     Dates: start: 1993
  2. NIMODIPINE [Suspect]
     Indication: MIGRAINE
     Dosage: 4 caps. daily by mouth
     Route: 048
     Dates: start: 1993

REACTIONS (2)
  - Retinal vein occlusion [None]
  - Intraocular pressure increased [None]
